FAERS Safety Report 9872113 (Version 2)
Quarter: 2014Q1

REPORT INFORMATION
  Report Type: Spontaneous
  Country: None (occurrence: US)
  Receive Date: 20140205
  Receipt Date: 20140205
  Transmission Date: 20141002
  Serious: No
  Sender: FDA-Public Use
  Company Number: US-ALLERGAN-1306934US

PATIENT
  Age: 42 Year
  Sex: Male

DRUGS (2)
  1. BOTOX [Suspect]
     Indication: TORTICOLLIS
     Dosage: 130 UNITS, SINGLE
     Route: 030
     Dates: start: 20130208, end: 20130208
  2. LISINOPRIL [Concomitant]
     Indication: HYPERTENSION

REACTIONS (7)
  - Hypertension [Recovering/Resolving]
  - Blood pressure fluctuation [Recovering/Resolving]
  - Mouth ulceration [Not Recovered/Not Resolved]
  - Oral pain [Recovering/Resolving]
  - Malaise [Unknown]
  - Headache [Unknown]
  - Syncope [Unknown]
